FAERS Safety Report 12454699 (Version 1)
Quarter: 2016Q2

REPORT INFORMATION
  Report Type: Spontaneous
  Country: US (occurrence: None)
  Receive Date: 20160609
  Receipt Date: 20160609
  Transmission Date: 20160815
  Serious: No
  Sender: FDA-Public Use
  Company Number: None

PATIENT
  Age: 59 Year
  Sex: Female
  Weight: 68.04 kg

DRUGS (4)
  1. FISH OIL [Concomitant]
     Active Substance: FISH OIL
  2. 1% LIDOCAINE WITH EPHINEPHRINE [Suspect]
     Active Substance: EPINEPHRINE BITARTRATE\LIDOCAINE HYDROCHLORIDE
     Indication: SURGERY
     Dates: start: 20160523, end: 20160523
  3. MULTI VITAMIN [Concomitant]
     Active Substance: VITAMINS
  4. CALCIUM WITH VITAMIN K [Concomitant]

REACTIONS (6)
  - Headache [None]
  - Urticaria [None]
  - Nonspecific reaction [None]
  - Pruritus [None]
  - Chills [None]
  - Hypoaesthesia [None]

NARRATIVE: CASE EVENT DATE: 20160523
